FAERS Safety Report 11922225 (Version 1)
Quarter: 2016Q1

REPORT INFORMATION
  Report Type: Spontaneous
  Country: US (occurrence: US)
  Receive Date: 20160115
  Receipt Date: 20160115
  Transmission Date: 20160526
  Serious: Yes (Death, Other)
  Sender: FDA-Public Use
  Company Number: US-SMITH AND NEPHEW, INC-2016SMT00006

PATIENT
  Sex: Male

DRUGS (1)
  1. REGRANEX [Suspect]
     Active Substance: BECAPLERMIN
     Indication: SKIN ULCER

REACTIONS (9)
  - Choking [Fatal]
  - Resuscitation [Unknown]
  - Blood pressure abnormal [Unknown]
  - Thrombosis [Unknown]
  - Off label use [Unknown]
  - Mechanical ventilation [Unknown]
  - Respiratory tract haemorrhage [Fatal]
  - Rib fracture [Unknown]
  - Device occlusion [Unknown]
